FAERS Safety Report 6133501-9 (Version None)
Quarter: 2009Q1

REPORT INFORMATION
  Report Type: 
  Country: None (occurrence: None)
  Receive Date: 20090325
  Receipt Date: 20090325
  Transmission Date: 20090719
  Serious: Yes (Hospitalization)
  Sender: FDA-Public Use
  Company Number: None

PATIENT
  Sex: Female
  Weight: 64.55 kg

DRUGS (2)
  1. CARBOPLATIN [Suspect]
     Dosage: 616 MG
  2. TAXOL [Suspect]
     Dosage: 282 MG
     Dates: start: 20090310

REACTIONS (7)
  - ASTHENIA [None]
  - BLOOD PRESSURE INCREASED [None]
  - BODY TEMPERATURE INCREASED [None]
  - CONSTIPATION [None]
  - DEHYDRATION [None]
  - NAUSEA [None]
  - SINUS TACHYCARDIA [None]
